FAERS Safety Report 15684909 (Version 1)
Quarter: 2018Q4

REPORT INFORMATION
  Report Type: Spontaneous
  Country: DE (occurrence: DE)
  Receive Date: 20181204
  Receipt Date: 20181204
  Transmission Date: 20190205
  Serious: Yes (Hospitalization)
  Sender: FDA-Public Use
  Company Number: DE-PFIZER INC-2018491851

PATIENT
  Age: 78 Year
  Sex: Female

DRUGS (2)
  1. METAMIZOL [Suspect]
     Active Substance: METAMIZOLE SODIUM
     Dosage: UNK, AS NEEDED
     Dates: start: 201508, end: 201602
  2. LEVETIRACETAM. [Suspect]
     Active Substance: LEVETIRACETAM
     Dates: start: 201107

REACTIONS (2)
  - Jaundice [Recovered/Resolved]
  - Hepatitis acute [Recovered/Resolved]

NARRATIVE: CASE EVENT DATE: 20160215
